FAERS Safety Report 8517913-1 (Version None)
Quarter: 2012Q3

REPORT INFORMATION
  Report Type: 
  Country: None (occurrence: None)
  Receive Date: 20120718
  Receipt Date: 20110714
  Transmission Date: 20120928
  Serious: Yes (Hospitalization)
  Sender: FDA-Public Use
  Company Number: US-BRISTOL-MYERS SQUIBB COMPANY-15903107

PATIENT
  Age: 54 Year
  Sex: Male

DRUGS (3)
  1. HYDROCHLOROTHIAZIDE [Concomitant]
  2. COUMADIN [Suspect]
     Dates: end: 20110101
  3. TEKTURNA [Concomitant]

REACTIONS (1)
  - HAEMOGLOBIN DECREASED [None]
